FAERS Safety Report 6070401-7 (Version None)
Quarter: 2009Q1

REPORT INFORMATION
  Report Type: 
  Country: None (occurrence: None)
  Receive Date: 20090204
  Receipt Date: 20090202
  Transmission Date: 20090719
  Serious: Yes (Life-Threatening, Hospitalization)
  Sender: FDA-Public Use
  Company Number: 2009SP002325

PATIENT
  Age: 41 Year
  Sex: Female

DRUGS (11)
  1. NOXAFIL [Suspect]
     Indication: DRUG USE FOR UNKNOWN INDICATION
     Dosage: 800 MG; ;PO
     Route: 048
     Dates: start: 20081021, end: 20081026
  2. FANSIDAR [Suspect]
     Indication: DRUG USE FOR UNKNOWN INDICATION
     Dosage: 3 DF;QD;PO, 4 DF;QD;PO
     Route: 048
     Dates: start: 20081023, end: 20081023
  3. FANSIDAR [Suspect]
     Indication: DRUG USE FOR UNKNOWN INDICATION
     Dosage: 3 DF;QD;PO, 4 DF;QD;PO
     Route: 048
     Dates: start: 20081024, end: 20081024
  4. FOSCAVIR [Suspect]
     Indication: DRUG USE FOR UNKNOWN INDICATION
     Dosage: 180 MG; ;PO
     Route: 048
     Dates: start: 20081022, end: 20081024
  5. NEORAL [Suspect]
     Indication: DRUG USE FOR UNKNOWN INDICATION
     Dosage: 240 MG; ;PO
     Route: 048
     Dates: start: 20080929, end: 20081024
  6. AMOXICILLIN [Suspect]
     Indication: DRUG USE FOR UNKNOWN INDICATION
     Dosage: 2 GM; ;PO
     Route: 048
     Dates: start: 20081021, end: 20081026
  7. CORTANCYL [Concomitant]
  8. LEDERFOLINE [Concomitant]
  9. STILNOX [Concomitant]
  10. CALCIUM CARBONATE [Concomitant]
  11. ALPRAZOLAM [Concomitant]

REACTIONS (6)
  - BLINDNESS CORTICAL [None]
  - CEREBROVASCULAR ACCIDENT [None]
  - EPILEPSY [None]
  - GRAND MAL CONVULSION [None]
  - HEADACHE [None]
  - PROGRESSIVE MULTIFOCAL LEUKOENCEPHALOPATHY [None]
